FAERS Safety Report 15290473 (Version 1)
Quarter: 2018Q3

REPORT INFORMATION
  Report Type: Report from Study
  Country: DE (occurrence: DE)
  Receive Date: 20180817
  Receipt Date: 20180817
  Transmission Date: 20181010
  Serious: Yes (Hospitalization)
  Sender: FDA-Public Use
  Company Number: DE-TEVA-2018-DE-942957

PATIENT
  Age: 53 Year
  Sex: Male

DRUGS (6)
  1. TAGRISSO [Suspect]
     Active Substance: OSIMERTINIB
     Indication: NON-SMALL CELL LUNG CANCER
     Dosage: 80 MILLIGRAM DAILY;
     Route: 048
     Dates: start: 20170404, end: 20170920
  2. PACLITAXEL. [Suspect]
     Active Substance: PACLITAXEL
     Route: 065
  3. NOVAMINSULFON [Concomitant]
     Active Substance: METAMIZOLE
     Indication: DIARRHOEA
     Dosage: AS NEEDED
     Route: 048
     Dates: start: 20170620
  4. CARBOPLATIN. [Suspect]
     Active Substance: CARBOPLATIN
     Route: 065
  5. BEVACIZUMAB. [Suspect]
     Active Substance: BEVACIZUMAB
     Route: 065
  6. LOPERAMID?RATIOPHARM [Concomitant]
     Indication: DIARRHOEA
     Dosage: AS NEEDED
     Route: 048
     Dates: start: 20170606

REACTIONS (2)
  - Diarrhoea [Recovered/Resolved]
  - Pyrexia [Recovered/Resolved]

NARRATIVE: CASE EVENT DATE: 20170926
